FAERS Safety Report 24022743 (Version 5)
Quarter: 2024Q3

REPORT INFORMATION
  Report Type: Report from Study
  Country: PE (occurrence: PE)
  Receive Date: 20240627
  Receipt Date: 20240710
  Transmission Date: 20241017
  Serious: No
  Sender: ROCHE
  Company Number: PE-ROCHE-3438673

PATIENT
  Age: 64 Year
  Sex: Female
  Weight: 55.5 kg

DRUGS (2)
  1. ALECTINIB [Suspect]
     Active Substance: ALECTINIB
     Indication: Non-small cell lung cancer metastatic
     Dosage: PRIOR INFUSION WAS DONE ON 12/JULY/2018
     Route: 048
     Dates: start: 20210902
  2. ALECTINIB [Suspect]
     Active Substance: ALECTINIB
     Indication: Malignant mediastinal neoplasm

REACTIONS (2)
  - Dry skin [Recovering/Resolving]
  - Anaemia [Recovered/Resolved]

NARRATIVE: CASE EVENT DATE: 20230913
